FAERS Safety Report 6031504-6 (Version None)
Quarter: 2009Q1

REPORT INFORMATION
  Report Type: 
  Country: None (occurrence: None)
  Receive Date: 20090108
  Receipt Date: 20090105
  Transmission Date: 20090719
  Serious: Yes (Death, Hospitalization, Other)
  Sender: FDA-Public Use
  Company Number: PHHO2007MX12922

PATIENT
  Age: 79 Year
  Sex: Female

DRUGS (2)
  1. DIOVAN HCT [Suspect]
     Indication: HYPERTENSION
     Dosage: 80MG/12.5MG DAILY
     Route: 048
     Dates: start: 20070401
  2. AVANDIA [Concomitant]
     Indication: DIABETES MELLITUS

REACTIONS (4)
  - CARDIO-RESPIRATORY ARREST [None]
  - PNEUMONIA [None]
  - TRACHEOSTOMY [None]
  - URINARY TRACT INFECTION [None]
